FAERS Safety Report 8312971-1 (Version None)
Quarter: 2012Q2

REPORT INFORMATION
  Report Type: 
  Country: None (occurrence: None)
  Receive Date: 20120426
  Receipt Date: 20120124
  Transmission Date: 20120825
  Serious: Yes (Other)
  Sender: FDA-Public Use
  Company Number: US-MYLANLABS-2012S1000657

PATIENT
  Age: 23 Year
  Sex: Female

DRUGS (4)
  1. ADDERALL 5 [Concomitant]
  2. LEXAPRO [Concomitant]
  3. BUPROPION HYDROCHLORIDE [Suspect]
     Indication: DEPRESSION
     Route: 048
     Dates: start: 20120104, end: 20120105
  4. ORAL CONTRACEPTIVE NOS [Concomitant]

REACTIONS (1)
  - MYALGIA [None]
